FAERS Safety Report 9166657 (Version 2)
Quarter: 2013Q2

REPORT INFORMATION
  Report Type: Spontaneous
  Country: US (occurrence: US)
  Receive Date: 20130315
  Receipt Date: 20130501
  Transmission Date: 20140414
  Serious: No
  Sender: FDA-Public Use
  Company Number: US-TEVA-392337USA

PATIENT
  Age: 35 Year
  Sex: Female
  Weight: 54.48 kg

DRUGS (12)
  1. PLAN B ONE-STEP [Suspect]
     Indication: POST COITAL CONTRACEPTION
     Dosage: 1.5 MILLIGRAM DAILY;
     Route: 048
     Dates: start: 20130309, end: 20130309
  2. KEPPRA [Concomitant]
     Indication: CONVULSION
  3. KEPPRA [Concomitant]
     Indication: MOVEMENT DISORDER
  4. LUNESTA [Concomitant]
     Indication: INSOMNIA
  5. KLORCON [Concomitant]
     Indication: BLOOD MAGNESIUM
  6. KLORCON [Concomitant]
     Indication: MEDICAL DIET
  7. PRESTIGUE [Concomitant]
     Indication: ANXIETY
  8. AUGMENTIN [Concomitant]
     Indication: SINUSITIS
  9. CYANOCOBALAMIN [Concomitant]
     Indication: VITAMIN B12 DECREASED
  10. FLORINESACATATE [Concomitant]
     Indication: HYPOTENSION
  11. LEVOTHYROXINE [Concomitant]
     Indication: HYPOTHYROIDISM
  12. FLONASE [Concomitant]
     Indication: PRODUCT USED FOR UNKNOWN INDICATION

REACTIONS (2)
  - Nausea [Recovered/Resolved]
  - Vomiting [Recovered/Resolved]
